FAERS Safety Report 25256133 (Version 1)
Quarter: 2025Q2

REPORT INFORMATION
  Report Type: Spontaneous
  Country: US (occurrence: None)
  Receive Date: 20250430
  Receipt Date: 20250430
  Transmission Date: 20250716
  Serious: No
  Sender: FDA-CTU
  Company Number: None

PATIENT

DRUGS (2)
  1. RINVOQ [Suspect]
     Active Substance: UPADACITINIB
  2. REXULTI [Suspect]
     Active Substance: BREXPIPRAZOLE

REACTIONS (6)
  - Therapy change [None]
  - Depression [None]
  - Fall [None]
  - Insomnia [None]
  - Hallucination [None]
  - Tardive dyskinesia [None]
